FAERS Safety Report 6447900-9 (Version None)
Quarter: 2009Q4

REPORT INFORMATION
  Report Type: 
  Country: None (occurrence: None)
  Receive Date: 20091120
  Receipt Date: 20091113
  Transmission Date: 20100525
  Serious: No
  Sender: FDA-Public Use
  Company Number: US-JNJFOC-20091104762

PATIENT
  Sex: Female
  Weight: 35.38 kg

DRUGS (7)
  1. DURAGESIC-100 [Suspect]
     Indication: BONE PAIN
     Route: 062
     Dates: start: 20030101, end: 20091101
  2. DETROL [Concomitant]
     Indication: BLADDER DISORDER
     Route: 048
  3. ARMODAFINIL [Concomitant]
     Indication: POOR QUALITY SLEEP
     Route: 048
  4. HYDROCODONE [Concomitant]
     Indication: PAIN
     Route: 048
  5. DIAZEPAM [Concomitant]
     Route: 048
  6. BONIVA [Concomitant]
     Indication: BONE DISORDER
     Route: 048
  7. IBUPROFEN [Concomitant]
     Indication: PAIN
     Route: 048

REACTIONS (7)
  - APPLICATION SITE PHOTOSENSITIVITY REACTION [None]
  - APPLICATION SITE REACTION [None]
  - DIARRHOEA [None]
  - DRUG DOSE OMISSION [None]
  - INCORRECT DRUG ADMINISTRATION DURATION [None]
  - WEIGHT INCREASED [None]
  - WITHDRAWAL SYNDROME [None]
